FAERS Safety Report 21544879 (Version 1)
Quarter: 2022Q4

REPORT INFORMATION
  Report Type: Spontaneous
  Country: US (occurrence: None)
  Receive Date: 20221101
  Receipt Date: 20221101
  Transmission Date: 20230112
  Serious: Yes (Hospitalization)
  Sender: FDA-Public Use
  Company Number: None

PATIENT
  Sex: Female

DRUGS (1)
  1. NORDITROPIN [Suspect]
     Active Substance: SOMATROPIN
     Indication: Turner^s syndrome
     Dosage: OTHER QUANTITY : 30MG/3ML;?OTHER FREQUENCY : 6 DAYS A WEEK;?INJECT 2.2 MG UNDER THE SKIN (SUBCUTANEO
     Route: 058
     Dates: start: 20210305

REACTIONS (2)
  - Hospitalisation [None]
  - Therapy interrupted [None]
